FAERS Safety Report 6379130-3 (Version None)
Quarter: 2009Q3

REPORT INFORMATION
  Report Type: 
  Country: None (occurrence: None)
  Receive Date: 20090928
  Receipt Date: 20090917
  Transmission Date: 20100115
  Serious: No
  Sender: FDA-Public Use
  Company Number: US-B.I. PHARMACEUTICALS,INC./RIDGEFIELD-2009-BP-10236BP

PATIENT
  Sex: Male

DRUGS (5)
  1. AGGRENOX [Suspect]
     Indication: TRANSIENT ISCHAEMIC ATTACK
     Route: 048
     Dates: start: 20090826, end: 20090826
  2. FLECAINIDE ACETATE [Concomitant]
     Dosage: 200 MG
  3. METOPROLOL [Concomitant]
     Dosage: 50 MG
  4. DIGOXIN [Concomitant]
     Dosage: 0.125 MG
  5. ASPIRIN [Concomitant]
     Dosage: 82 MG

REACTIONS (3)
  - HEADACHE [None]
  - NAUSEA [None]
  - VOMITING [None]
